FAERS Safety Report 12857068 (Version 1)
Quarter: 2016Q4

REPORT INFORMATION
  Report Type: Spontaneous
  Country: US (occurrence: US)
  Receive Date: 20161018
  Receipt Date: 20161018
  Transmission Date: 20170207
  Serious: No
  Sender: FDA-Public Use
  Company Number: US-BAYER-2016-200636

PATIENT
  Sex: Male

DRUGS (1)
  1. ALEVE [Suspect]
     Active Substance: NAPROXEN SODIUM
     Indication: OROPHARYNGEAL PAIN
     Dosage: 3 DF, IN LAST 24 HOURS
     Route: 048

REACTIONS (1)
  - Drug ineffective for unapproved indication [Unknown]
